FAERS Safety Report 8065841-0 (Version None)
Quarter: 2012Q1

REPORT INFORMATION
  Report Type: 
  Country: None (occurrence: None)
  Receive Date: 20120124
  Receipt Date: 20120112
  Transmission Date: 20120608
  Serious: Yes (Other)
  Sender: FDA-Public Use
  Company Number: JP-BRISTOL-MYERS SQUIBB COMPANY-16355505

PATIENT

DRUGS (3)
  1. ERBITUX [Suspect]
     Route: 042
  2. IRINOTECAN HCL [Concomitant]
     Route: 042
  3. WARFARIN SODIUM [Concomitant]

REACTIONS (2)
  - PROTHROMBIN TIME PROLONGED [None]
  - BONE MARROW FAILURE [None]
